FAERS Safety Report 8977011 (Version 1)
Quarter: 2012Q4

REPORT INFORMATION
  Report Type: 
  Country: US (occurrence: US)
  Receive Date: 20121220
  Receipt Date: 20121220
  Transmission Date: 20130627
  Serious: No
  Sender: FDA-Public Use
  Company Number: US-GLAXOSMITHKLINE-A0992160A

PATIENT
  Age: 54 Year
  Sex: Female

DRUGS (2)
  1. SORIATANE [Suspect]
     Indication: PUSTULAR PSORIASIS
     Dosage: 25MG Per day
     Route: 048
     Dates: start: 20120725, end: 20120801
  2. METHIMAZOLE [Concomitant]

REACTIONS (8)
  - Pain [Recovered/Resolved]
  - Pain in extremity [Unknown]
  - Back pain [Unknown]
  - Gingival pain [Unknown]
  - Paraesthesia [Unknown]
  - Asthenia [Unknown]
  - Neuralgia [Unknown]
  - Musculoskeletal pain [Unknown]
